FAERS Safety Report 14008461 (Version 1)
Quarter: 2017Q3

REPORT INFORMATION
  Report Type: Spontaneous
  Country: FR (occurrence: FR)
  Receive Date: 20170925
  Receipt Date: 20170925
  Transmission Date: 20171128
  Serious: Yes (Other)
  Sender: FDA-Public Use
  Company Number: FR-VALIDUS PHARMACEUTICALS LLC-FR-2017VAL001363

PATIENT
  Age: 78 Year
  Sex: Female

DRUGS (2)
  1. FUROSEMIDE. [Suspect]
     Active Substance: FUROSEMIDE
     Indication: HYPERTENSIVE HEART DISEASE
     Dosage: UNK
  2. ALDACTONE [Suspect]
     Active Substance: SPIRONOLACTONE
     Indication: HYPERTENSIVE HEART DISEASE
     Dosage: UNK

REACTIONS (5)
  - Respiratory distress [Recovering/Resolving]
  - Dyspnoea [Recovering/Resolving]
  - Somnolence [Unknown]
  - Hypercapnic coma [Unknown]
  - Hyperkalaemia [Recovered/Resolved]
